FAERS Safety Report 9439201 (Version 1)
Quarter: 2013Q3

REPORT INFORMATION
  Report Type: Spontaneous
  Country: US (occurrence: US)
  Receive Date: 20130803
  Receipt Date: 20130803
  Transmission Date: 20140515
  Serious: Yes (Hospitalization)
  Sender: FDA-Public Use
  Company Number: US-B.I. PHARMACEUTICALS,INC./RIDGEFIELD-2013-BI-22679BP

PATIENT
  Age: 74 Year
  Sex: Female

DRUGS (10)
  1. PRADAXA [Suspect]
     Dosage: 300 MG
     Route: 048
     Dates: start: 2010, end: 201302
  2. PRADAXA [Suspect]
     Dosage: 150 MG
     Route: 048
     Dates: start: 201302
  3. METFORMIN/GLIPIZIDE [Concomitant]
     Indication: DIABETES MELLITUS
     Dosage: STRENGTH: 10 MG / 2000 MG; DAILY DOSE: 20 MG / 4000 MG
     Route: 048
  4. EXFORGE HCT [Concomitant]
     Indication: HYPERTENSION
     Dosage: STRENGTH: 5-160-25 MG; DAILY DOSE: 5-160-25 MG
     Route: 048
  5. JANUVIA [Concomitant]
     Indication: DIABETES MELLITUS
     Dosage: 100 MG
     Route: 048
  6. OMEPRAZOLE [Concomitant]
     Route: 048
  7. ATORVASTATIN [Concomitant]
     Indication: BLOOD CHOLESTEROL INCREASED
     Dosage: 20 MG
     Route: 048
  8. POTASSIUM [Concomitant]
     Indication: BLOOD POTASSIUM DECREASED
     Dosage: 3 ANZ
     Route: 048
  9. METOPROLOL [Concomitant]
     Indication: HYPERTENSION
     Dosage: 100 MG
     Route: 048
  10. LEVOTHYROXINE [Concomitant]
     Indication: HYPOTHYROIDISM
     Dosage: 50 MG
     Route: 048

REACTIONS (1)
  - Myocardial infarction [Recovered/Resolved]
